FAERS Safety Report 13463193 (Version 1)
Quarter: 2017Q2

REPORT INFORMATION
  Report Type: Spontaneous
  Country: GB (occurrence: GB)
  Receive Date: 20170420
  Receipt Date: 20170420
  Transmission Date: 20170830
  Serious: Yes (Hospitalization)
  Sender: FDA-Public Use
  Company Number: GB-SA-2017SA067332

PATIENT
  Age: 72 Year
  Sex: Male
  Weight: 85.7 kg

DRUGS (5)
  1. PERINDOPRIL [Concomitant]
     Active Substance: PERINDOPRIL
     Route: 065
  2. INDAPAMIDE. [Suspect]
     Active Substance: INDAPAMIDE
     Indication: HYPERTENSION
     Route: 048
     Dates: start: 20170321, end: 20170331
  3. ASPIRIN. [Concomitant]
     Active Substance: ASPIRIN
     Route: 065
  4. BISOPROLOL [Concomitant]
     Active Substance: BISOPROLOL
     Route: 065
  5. SIMVASTATIN. [Concomitant]
     Active Substance: SIMVASTATIN
     Route: 065

REACTIONS (7)
  - Lip swelling [Unknown]
  - Confusional state [Unknown]
  - Gait disturbance [Unknown]
  - Pyrexia [Unknown]
  - Rash erythematous [Not Recovered/Not Resolved]
  - Skin warm [Unknown]
  - Eye swelling [Unknown]

NARRATIVE: CASE EVENT DATE: 20170331
